FAERS Safety Report 9222312 (Version 1)
Quarter: 2013Q2

REPORT INFORMATION
  Report Type: Spontaneous
  Country: FR (occurrence: None)
  Receive Date: 20130408
  Receipt Date: 20130408
  Transmission Date: 20140414
  Serious: Yes (Death, Hospitalization)
  Sender: FDA-Public Use
  Company Number: SYM-2013-02254

PATIENT
  Age: 84 Year
  Sex: Female

DRUGS (2)
  1. FLAGYL [Suspect]
     Indication: PRODUCT USED FOR UNKNOWN INDICATION
     Dates: start: 20121127, end: 20130129
  2. OFLOCET [Suspect]
     Indication: PRODUCT USED FOR UNKNOWN INDICATION
     Dates: start: 20121127, end: 20130107

REACTIONS (7)
  - Depressed level of consciousness [None]
  - Hemiparesis [None]
  - Dysarthria [None]
  - Escherichia test positive [None]
  - Abdominal sepsis [None]
  - Disease recurrence [None]
  - Nuclear magnetic resonance imaging brain abnormal [None]
